FAERS Safety Report 5488682-7 (Version None)
Quarter: 2007Q4

REPORT INFORMATION
  Report Type: 
  Country: None (occurrence: None)
  Receive Date: 20071017
  Receipt Date: 20071013
  Transmission Date: 20080405
  Serious: Yes (Other)
  Sender: FDA-Public Use
  Company Number: US-PFIZER INC-2007085988

PATIENT
  Sex: Female

DRUGS (5)
  1. DETROL LA [Suspect]
     Indication: BLADDER DISTENSION
     Route: 048
  2. TRAMADOL HCL [Concomitant]
     Route: 048
  3. FOSAMAX [Concomitant]
     Route: 048
  4. ATENOLOL [Concomitant]
     Route: 048
  5. COUMADIN [Concomitant]
     Route: 048

REACTIONS (3)
  - CATARACT [None]
  - DRY MOUTH [None]
  - MACULAR DEGENERATION [None]
